FAERS Safety Report 11372132 (Version 2)
Quarter: 2015Q3

REPORT INFORMATION
  Report Type: Report from Study
  Country: JP (occurrence: JP)
  Receive Date: 20150812
  Receipt Date: 20150929
  Transmission Date: 20151125
  Serious: Yes (Other)
  Sender: FDA-Public Use
  Company Number: JP-B.I. PHARMACEUTICALS,INC./RIDGEFIELD-2015-BI-05027NB

PATIENT
  Age: 62 Year
  Sex: Female
  Weight: 33.2 kg

DRUGS (3)
  1. GILOTRIF [Suspect]
     Active Substance: AFATINIB
     Dosage: 30 MG
     Route: 065
     Dates: start: 20141023, end: 20141118
  2. GILOTRIF [Suspect]
     Active Substance: AFATINIB
     Dosage: 20 MG
     Route: 065
     Dates: start: 20141204, end: 20150604
  3. GILOTRIF [Suspect]
     Active Substance: AFATINIB
     Indication: LUNG ADENOCARCINOMA
     Dosage: 30 MG
     Route: 065
     Dates: start: 20141001, end: 20141007

REACTIONS (8)
  - Diarrhoea [Recovered/Resolved]
  - Stomatitis [Recovered/Resolved]
  - Skin disorder [Recovered/Resolved]
  - Skin disorder [Recovered/Resolved]
  - Dysgeusia [Recovered/Resolved]
  - Malignant neoplasm progression [Recovered/Resolved]
  - Glossodynia [Recovered/Resolved]
  - Diarrhoea [Recovered/Resolved]

NARRATIVE: CASE EVENT DATE: 20141028
